FAERS Safety Report 6991872-5 (Version None)
Quarter: 2010Q3

REPORT INFORMATION
  Report Type: 
  Country: None (occurrence: None)
  Receive Date: 20100917
  Receipt Date: 20100908
  Transmission Date: 20110219
  Serious: Yes (Other)
  Sender: FDA-Public Use
  Company Number: BR-PFIZER INC-2010113371

PATIENT
  Age: 33 Year
  Sex: Female
  Weight: 70 kg

DRUGS (4)
  1. DEPO-PROVERA [Suspect]
     Indication: CONTRACEPTION
     Dosage: 150 MG, EVERY 3 MONTHS
     Route: 030
     Dates: start: 20080101
  2. SIBUTRAMINE [Concomitant]
     Dosage: UNK
     Dates: start: 20100101, end: 20100101
  3. FLUOXETINE [Concomitant]
     Dosage: UNK
     Dates: start: 20100101, end: 20100101
  4. AMFEPRAMONE [Concomitant]
     Dosage: UNK
     Dates: start: 20100724, end: 20100815

REACTIONS (4)
  - ABDOMINAL DISTENSION [None]
  - ANXIETY [None]
  - INCREASED APPETITE [None]
  - WEIGHT INCREASED [None]
